FAERS Safety Report 9626737 (Version 1)
Quarter: 2013Q4

REPORT INFORMATION
  Report Type: Spontaneous
  Country: US (occurrence: US)
  Receive Date: 20131016
  Receipt Date: 20131016
  Transmission Date: 20140711
  Serious: Yes (Hospitalization)
  Sender: FDA-Public Use
  Company Number: US-CELGENEUS-163-20785-13101587

PATIENT
  Sex: Female

DRUGS (1)
  1. THALOMID [Suspect]
     Indication: PLASMA CELL MYELOMA
     Dosage: 100 MILLIGRAM
     Route: 048
     Dates: start: 200812

REACTIONS (4)
  - Fall [Unknown]
  - Rib fracture [Unknown]
  - Fall [Unknown]
  - Rib fracture [Unknown]
